FAERS Safety Report 7062667-1 (Version None)
Quarter: 2010Q4

REPORT INFORMATION
  Report Type: 
  Country: None (occurrence: None)
  Receive Date: 20101026
  Receipt Date: 20091210
  Transmission Date: 20110411
  Serious: No
  Sender: FDA-Public Use
  Company Number: US-PFIZER INC-2009310529

PATIENT
  Sex: Female
  Weight: 55.329 kg

DRUGS (5)
  1. LIPITOR [Suspect]
     Indication: BLOOD CHOLESTEROL INCREASED
     Dosage: 10 MG, 1X/DAY
     Route: 048
     Dates: end: 20091201
  2. VITAMINS [Concomitant]
  3. CALCIUM [Concomitant]
  4. XANAX [Concomitant]
     Indication: GENERALISED ANXIETY DISORDER
  5. XANAX [Concomitant]
     Indication: PANIC DISORDER

REACTIONS (3)
  - LIVER FUNCTION TEST ABNORMAL [None]
  - PAIN IN EXTREMITY [None]
  - SENSATION OF HEAVINESS [None]
